FAERS Safety Report 17435369 (Version 1)
Quarter: 2020Q1

REPORT INFORMATION
  Report Type: Spontaneous
  Country: US (occurrence: US)
  Receive Date: 20200218
  Receipt Date: 20200218
  Transmission Date: 20200409
  Serious: Yes (Hospitalization)
  Sender: FDA-Public Use
  Company Number: None

PATIENT
  Age: 48 Year
  Sex: Female

DRUGS (13)
  1. VITAMIN B12 [Concomitant]
     Active Substance: CYANOCOBALAMIN
  2. METFORMIN [Concomitant]
     Active Substance: METFORMIN HYDROCHLORIDE
  3. EDARBI [Concomitant]
     Active Substance: AZILSARTAN KAMEDOXOMIL
  4. HYDROCHLOROT [Concomitant]
     Active Substance: HYDROCHLOROTHIAZIDE
  5. CAPECITABINE. [Suspect]
     Active Substance: CAPECITABINE
     Indication: COLON CANCER
     Route: 048
     Dates: start: 20200114
  6. LOSARTAN. [Concomitant]
     Active Substance: LOSARTAN
  7. MAGNESIUM [Concomitant]
     Active Substance: MAGNESIUM
  8. VITAMIN D3 [Concomitant]
     Active Substance: CHOLECALCIFEROL
  9. EDARBYCLOR [Concomitant]
     Active Substance: AZILSARTAN KAMEDOXOMIL\CHLORTHALIDONE
  10. ESTRADIOL. [Concomitant]
     Active Substance: ESTRADIOL
  11. BYSTOLIC [Concomitant]
     Active Substance: NEBIVOLOL HYDROCHLORIDE
  12. VITAMIN D3 [Concomitant]
     Active Substance: CHOLECALCIFEROL
  13. DILTIAZEM. [Concomitant]
     Active Substance: DILTIAZEM

REACTIONS (12)
  - Headache [None]
  - Abdominal pain upper [None]
  - Taste disorder [None]
  - Decreased appetite [None]
  - Pyrexia [None]
  - Burning sensation [None]
  - Neuropathy peripheral [None]
  - Fatigue [None]
  - Dyspepsia [None]
  - Non-cardiac chest pain [None]
  - Palmar-plantar erythrodysaesthesia syndrome [None]
  - Hypoaesthesia [None]
